FAERS Safety Report 5100120-2 (Version None)
Quarter: 2006Q3

REPORT INFORMATION
  Report Type: 
  Country: None (occurrence: None)
  Receive Date: 20060802
  Receipt Date: 20060511
  Transmission Date: 20061208
  Serious: Yes (Hospitalization)
  Sender: FDA-Public Use
  Company Number: US-JNJFOC-20060502811

PATIENT
  Age: 16 Year

DRUGS (1)
  1. EXTRA STRENGTH TYLENOL [Suspect]
     Indication: DRUG USE FOR UNKNOWN INDICATION
     Dosage: 15000 MG, 1 IN 1 TOTAL
     Dates: start: 20060501, end: 20060501

REACTIONS (2)
  - HEPATIC FAILURE [None]
  - OVERDOSE [None]
